FAERS Safety Report 7128405-9 (Version None)
Quarter: 2010Q4

REPORT INFORMATION
  Report Type: 
  Country: None (occurrence: None)
  Receive Date: 20101130
  Receipt Date: 20101118
  Transmission Date: 20110411
  Serious: Yes (Other)
  Sender: FDA-Public Use
  Company Number: PHHY2010DE29710

PATIENT
  Age: 80 Year
  Sex: Female

DRUGS (5)
  1. RASILEZ [Suspect]
     Indication: HYPERTENSION
     Dosage: 300 MG, QD
     Dates: start: 20100201, end: 20100505
  2. RASILEZ [Suspect]
     Dosage: 150 MG BID
     Dates: start: 20100506, end: 20100501
  3. LEVOTHYROXINE SODIUM [Concomitant]
     Indication: THYROID OPERATION
     Dosage: 75 UG EVERY OTHER DAY ALTERNATINGLY WITH 50 MG EVERY OTHER DAY
     Dates: start: 20020101, end: 20100401
  4. LEVOTHYROXINE SODIUM [Concomitant]
     Dosage: 75 UG/D
     Dates: start: 20100401
  5. NEBIVOLOL HCL [Concomitant]
     Dosage: UNK
     Dates: start: 20090101, end: 20100401

REACTIONS (5)
  - BLOOD PRESSURE INADEQUATELY CONTROLLED [None]
  - CONCOMITANT DISEASE AGGRAVATED [None]
  - DIZZINESS [None]
  - EXTRASYSTOLES [None]
  - TACHYCARDIA [None]
